FAERS Safety Report 10068362 (Version 2)
Quarter: 2014Q2

REPORT INFORMATION
  Report Type: Spontaneous
  Country: TR (occurrence: TR)
  Receive Date: 20140409
  Receipt Date: 20140421
  Transmission Date: 20141212
  Serious: Yes (Hospitalization, Other)
  Sender: FDA-Public Use
  Company Number: TR-PFIZER INC-2014098985

PATIENT
  Age: 41 Year
  Sex: Male
  Weight: 93 kg

DRUGS (3)
  1. CHAMPIX [Suspect]
     Indication: SMOKING CESSATION THERAPY
     Dosage: 0.5 MG, DAILY
     Route: 048
     Dates: start: 20140320, end: 2014
  2. CHAMPIX [Suspect]
     Dosage: 1 MG, DAILY
     Route: 048
     Dates: start: 2014, end: 2014
  3. CHAMPIX [Suspect]
     Dosage: 2 MG, DAILY
     Route: 048
     Dates: start: 2014, end: 20140404

REACTIONS (7)
  - Myocardial infarction [Unknown]
  - Chest pain [Recovered/Resolved]
  - Asthenia [Recovered/Resolved]
  - Hypoaesthesia [Recovered/Resolved]
  - Throat irritation [Recovered/Resolved]
  - Oral pain [Recovered/Resolved]
  - Feeling abnormal [Unknown]
